FAERS Safety Report 17044520 (Version 1)
Quarter: 2019Q4

REPORT INFORMATION
  Report Type: Other
  Country: US (occurrence: US)
  Receive Date: 20191118
  Receipt Date: 20191118
  Transmission Date: 20200122
  Serious: No
  Sender: FDA-Public Use
  Company Number: US-LEADIANT BIOSCIENCES, INC.-2019STPI000407

PATIENT

DRUGS (19)
  1. OMEGA 3 6 9 [BORAGO OFFICINALIS OIL;LINUM USITATISSIMUM SEED OIL;OENOT [Concomitant]
  2. MULTIVITAMINUM [Concomitant]
     Active Substance: VITAMINS
  3. REVCOVI [Suspect]
     Active Substance: ELAPEGADEMASE-LVLR
     Indication: COMBINED IMMUNODEFICIENCY
     Dosage: 14.4 MILLIGRAM(9ML), Q2W TUESDAY AND THURSDAY
     Route: 058
     Dates: start: 20190320
  4. CALCIUM D3 [Concomitant]
     Active Substance: CALCIUM\CHOLECALCIFEROL
  5. STRATTERA [Concomitant]
     Active Substance: ATOMOXETINE HYDROCHLORIDE
  6. REVCOVI [Suspect]
     Active Substance: ELAPEGADEMASE-LVLR
     Dosage: 14.4 MILLIGRAM, (9ML) Q2W
     Route: 058
     Dates: start: 20190320
  7. PROBIOTICS NOS [Concomitant]
     Active Substance: PROBIOTICS NOS
  8. HYDROXYZINE [Concomitant]
     Active Substance: HYDROXYZINE HYDROCHLORIDE
  9. LEXAPRO [Concomitant]
     Active Substance: ESCITALOPRAM OXALATE
  10. XANAX [Concomitant]
     Active Substance: ALPRAZOLAM
  11. ARMOUR THYROID [Concomitant]
     Active Substance: THYROID, PORCINE
  12. IRON [Concomitant]
     Active Substance: IRON
  13. PLAQUENIL [Concomitant]
     Active Substance: HYDROXYCHLOROQUINE SULFATE
  14. CUVITRU [Concomitant]
     Active Substance: HUMAN IMMUNOGLOBULIN G
  15. ALEVE [Concomitant]
     Active Substance: NAPROXEN SODIUM
  16. IODINE. [Concomitant]
     Active Substance: IODINE
  17. ACYCLOVIR [ACICLOVIR] [Concomitant]
     Active Substance: ACYCLOVIR
  18. BENADRYL [Concomitant]
     Active Substance: DIPHENHYDRAMINE HYDROCHLORIDE
  19. LIDOCREAM [Concomitant]

REACTIONS (2)
  - Injection site rash [Not Recovered/Not Resolved]
  - Product dose omission [Not Recovered/Not Resolved]
